FAERS Safety Report 6763730-2 (Version None)
Quarter: 2010Q2

REPORT INFORMATION
  Report Type: 
  Country: None (occurrence: None)
  Receive Date: 20100608
  Receipt Date: 20100526
  Transmission Date: 20101027
  Serious: Yes (Hospitalization)
  Sender: FDA-Public Use
  Company Number: 7006149

PATIENT
  Age: 52 Year
  Sex: Female
  Weight: 77 kg

DRUGS (8)
  1. REBIF [Suspect]
     Indication: MULTIPLE SCLEROSIS
     Dosage: 44 MCG, 3 IN 1 WK, SUBCUTANEOUS
     Route: 058
     Dates: start: 20050823, end: 20090301
  2. STEROIDS (CORTICOSTEROIDS) [Suspect]
     Indication: DRUG USE FOR UNKNOWN INDICATION
     Dosage: INTRAVENOUS (NOT OTHERWISE SPECIFIED)
     Route: 042
     Dates: start: 20040101, end: 20091001
  3. NEURONTIN [Concomitant]
  4. BACLOFEN [Concomitant]
  5. NEXIUM [Concomitant]
  6. VESICARE [Concomitant]
  7. REQUIP [Concomitant]
  8. ZANAFLEX [Concomitant]

REACTIONS (4)
  - DEPRESSION [None]
  - DEVICE DISLOCATION [None]
  - MEDICAL DEVICE CHANGE [None]
  - OSTEONECROSIS [None]
